FAERS Safety Report 9023717 (Version 2)
Quarter: 2013Q2

REPORT INFORMATION
  Report Type: Report from Study
  Country: US (occurrence: US)
  Receive Date: 20130121
  Receipt Date: 20130408
  Transmission Date: 20140414
  Serious: No
  Sender: FDA-Public Use
  Company Number: US-VERTEX PHARMACEUTICALS INC.-2013-000805

PATIENT
  Age: 63 Year
  Sex: Male
  Weight: 121 kg

DRUGS (13)
  1. VX-950 (TELAPREVIR) [Suspect]
     Indication: HEPATITIS C
     Dosage: 750 MG, TID
     Route: 048
     Dates: start: 20121114
  2. PEGASYS [Suspect]
     Indication: HEPATITIS C
     Dosage: 180 ?G, QW
     Route: 058
     Dates: start: 20121114
  3. RIBAPAK [Suspect]
     Indication: HEPATITIS C
     Dosage: 600 MG, BID
     Route: 048
     Dates: start: 20121114
  4. OMEPRAZOLE [Concomitant]
     Dosage: 1 DF, QD
     Route: 048
  5. LATANOPROST [Concomitant]
     Dosage: 1 GTT, QD
     Route: 031
  6. MULTIVITAMINS [Concomitant]
     Dosage: 1 DF, QD
     Route: 048
  7. ANUCORT-HC [Concomitant]
     Dosage: 1 DF, PRN
     Route: 054
  8. ALIGN [Concomitant]
     Dosage: 4 MG, QD
     Route: 048
  9. ASPIRIN (E.C.) [Concomitant]
     Dosage: 1 DF, QD
     Route: 048
  10. VITAMIN D3 [Concomitant]
     Dosage: 1 DF, QW
     Route: 048
  11. COMBIGAN [Concomitant]
     Dosage: 1 GTT, BID
     Route: 031
  12. AMLODIPINE BESYLATE [Concomitant]
     Dosage: 5 MG, QD
     Route: 048
  13. TEMAZEPAM [Concomitant]
     Dosage: 30 MG, QD
     Route: 048

REACTIONS (7)
  - Blood count abnormal [Unknown]
  - Dizziness [Unknown]
  - Pulmonary congestion [Unknown]
  - Nasopharyngitis [Unknown]
  - Oropharyngeal pain [Unknown]
  - Insomnia [Unknown]
  - Fatigue [Unknown]
